FAERS Safety Report 5685423-5 (Version None)
Quarter: 2008Q1

REPORT INFORMATION
  Report Type: 
  Country: None (occurrence: None)
  Receive Date: 20080328
  Receipt Date: 20080319
  Transmission Date: 20080703
  Serious: Yes (Hospitalization)
  Sender: FDA-Public Use
  Company Number: US-BAYER-200817413NA

PATIENT
  Age: 37 Year
  Sex: Female
  Weight: 64 kg

DRUGS (4)
  1. YASMIN [Suspect]
     Indication: CONTRACEPTION
     Route: 048
     Dates: start: 20060101, end: 20061201
  2. YASMIN [Suspect]
     Route: 048
     Dates: start: 20070301, end: 20080313
  3. PAXIL [Concomitant]
  4. LOESTRIN 1.5/30 [Concomitant]

REACTIONS (7)
  - ASTHENIA [None]
  - DIZZINESS [None]
  - FATIGUE [None]
  - HEADACHE [None]
  - HYPOAESTHESIA [None]
  - PARAESTHESIA [None]
  - SENSATION OF HEAVINESS [None]
